FAERS Safety Report 15853136 (Version 1)
Quarter: 2019Q1

REPORT INFORMATION
  Report Type: Spontaneous
  Country: IT (occurrence: IT)
  Receive Date: 20190122
  Receipt Date: 20190122
  Transmission Date: 20190417
  Serious: Yes (Other)
  Sender: FDA-Public Use
  Company Number: IT-IMPAX LABORATORIES, LLC-2019-IPXL-00139

PATIENT

DRUGS (1)
  1. PROPRANOLOL HYDROCHLORIDE IR [Suspect]
     Active Substance: PROPRANOLOL HYDROCHLORIDE
     Indication: RETINOPATHY OF PREMATURITY
     Dosage: UNK
     Route: 048

REACTIONS (5)
  - Infantile apnoea [Recovered/Resolved]
  - Atelectasis neonatal [Recovered/Resolved]
  - Bradycardia neonatal [Recovered/Resolved]
  - Off label use [Unknown]
  - Respiratory failure [Recovered/Resolved]
